FAERS Safety Report 23111500 (Version 1)
Quarter: 2023Q4

REPORT INFORMATION
  Report Type: Spontaneous
  Country: US (occurrence: None)
  Receive Date: 20231026
  Receipt Date: 20231026
  Transmission Date: 20240110
  Serious: Yes (Other)
  Sender: FDA-Public Use
  Company Number: 2023A237484

PATIENT
  Age: 25986 Day
  Sex: Female

DRUGS (1)
  1. TAGRISSO [Suspect]
     Active Substance: OSIMERTINIB
     Route: 048
     Dates: start: 20231226

REACTIONS (9)
  - Pneumonitis [Not Recovered/Not Resolved]
  - Osteonecrosis of jaw [Unknown]
  - Dental discomfort [Recovered/Resolved]
  - Diarrhoea [Not Recovered/Not Resolved]
  - Eye disorder [Not Recovered/Not Resolved]
  - Oral pain [Unknown]
  - Dental caries [Unknown]
  - Mouth injury [Unknown]
  - Jaw disorder [Unknown]
